FAERS Safety Report 22237731 (Version 2)
Quarter: 2023Q2

REPORT INFORMATION
  Report Type: Spontaneous
  Country: GR (occurrence: GR)
  Receive Date: 20230421
  Receipt Date: 20230505
  Transmission Date: 20230721
  Serious: Yes (Other)
  Sender: FDA-Public Use
  Company Number: GR-CELLTRION INC.-2023GR008043

PATIENT

DRUGS (6)
  1. ADALIMUMAB [Suspect]
     Active Substance: ADALIMUMAB
     Indication: Rheumatoid arthritis
     Dosage: UNK
     Route: 058
  2. INFLIXIMAB [Suspect]
     Active Substance: INFLIXIMAB
     Indication: Rheumatoid arthritis
     Dosage: UNK
     Dates: start: 20200224
  3. ETANERCEPT [Suspect]
     Active Substance: ETANERCEPT
     Indication: Rheumatoid arthritis
     Dosage: UNK
     Dates: start: 202009
  4. METHOTREXATE [Suspect]
     Active Substance: METHOTREXATE
     Indication: Product used for unknown indication
     Dosage: UNK
     Dates: start: 20190711
  5. METHYLPREDNISOLONE [Suspect]
     Active Substance: METHYLPREDNISOLONE
     Indication: Product used for unknown indication
     Dosage: 16 MILLIGRAM
     Route: 048
  6. METHYLPREDNISOLONE [Suspect]
     Active Substance: METHYLPREDNISOLONE
     Dosage: 8 MILLIGRAM
     Route: 048
     Dates: start: 20200305

REACTIONS (15)
  - Tracheomalacia [Unknown]
  - Bronchomalacia [Unknown]
  - Polychondritis [Unknown]
  - Episcleritis [Unknown]
  - C-reactive protein increased [Unknown]
  - Musculoskeletal stiffness [Unknown]
  - Red blood cell sedimentation rate increased [Unknown]
  - Joint stiffness [Unknown]
  - Musculoskeletal stiffness [Unknown]
  - Oedema [Recovered/Resolved]
  - Pyrexia [Unknown]
  - Pain [Unknown]
  - Rash [Unknown]
  - Drug hypersensitivity [Unknown]
  - Drug ineffective [Unknown]

NARRATIVE: CASE EVENT DATE: 20200501
